FAERS Safety Report 9674202 (Version 3)
Quarter: 2013Q4

REPORT INFORMATION
  Report Type: Report from Study
  Country: US (occurrence: US)
  Receive Date: 20131106
  Receipt Date: 20131115
  Transmission Date: 20140711
  Serious: Yes (Death)
  Sender: FDA-Public Use
  Company Number: US-ROCHE-1298098

PATIENT
  Sex: Male
  Weight: 116 kg

DRUGS (3)
  1. XELODA [Suspect]
     Indication: COLON CANCER
     Dosage: 5 DAYS ON AND 2DAYS OFF
     Route: 048
  2. XELODA [Suspect]
     Route: 048
  3. XELODA [Suspect]
     Dosage: 5 DAYS ON AND 2DAYS OFF
     Route: 048
     Dates: start: 20131001

REACTIONS (2)
  - Myocardial infarction [Fatal]
  - Cardiac arrest [Fatal]
